FAERS Safety Report 14610105 (Version 1)
Quarter: 2018Q1

REPORT INFORMATION
  Report Type: Spontaneous
  Country: VN (occurrence: VN)
  Receive Date: 20180307
  Receipt Date: 20180307
  Transmission Date: 20180509
  Serious: No
  Sender: FDA-Public Use
  Company Number: VN-B. BRAUN MEDICAL INC.-2043192

PATIENT
  Age: 46 Year
  Sex: Female

DRUGS (3)
  1. LACTATED RINGERS SOLUTION [Suspect]
     Active Substance: CALCIUM CHLORIDE\POTASSIUM CHLORIDE\SODIUM CHLORIDE\SODIUM LACTATE
     Indication: SINUSITIS
     Route: 042
     Dates: start: 20170510
  2. MOBIC [Concomitant]
     Active Substance: MELOXICAM
  3. DEKAPINE (VALPROIC ACID) [Concomitant]

REACTIONS (1)
  - Feeling cold [Unknown]

NARRATIVE: CASE EVENT DATE: 20170511
